FAERS Safety Report 17754039 (Version 1)
Quarter: 2020Q2

REPORT INFORMATION
  Report Type: Spontaneous
  Country: US (occurrence: US)
  Receive Date: 20200506
  Receipt Date: 20200506
  Transmission Date: 20200714
  Serious: No
  Sender: FDA-Public Use
  Company Number: US-BELCHER PHARMACEUTICALS, LLC-2020VTS00028

PATIENT
  Age: 73 Year
  Sex: Female

DRUGS (1)
  1. CHLORDIAZEPOXIDE-CLIDINIUM [Suspect]
     Active Substance: CHLORDIAZEPOXIDE\CLIDINIUM
     Indication: IRRITABLE BOWEL SYNDROME
     Dosage: 1 CAPSULES, 3X/DAY

REACTIONS (1)
  - Therapeutic product effect incomplete [Not Recovered/Not Resolved]
